FAERS Safety Report 8407228-4 (Version None)
Quarter: 2012Q2

REPORT INFORMATION
  Report Type: 
  Country: None (occurrence: None)
  Receive Date: 20120604
  Receipt Date: 20120529
  Transmission Date: 20120825
  Serious: Yes (Life-Threatening, Hospitalization)
  Sender: FDA-Public Use
  Company Number: SE-ASTRAZENECA-2012SE34347

PATIENT
  Sex: Male

DRUGS (3)
  1. NEXIUM [Suspect]
     Dosage: GENERIC
     Route: 048
  2. NEXIUM [Suspect]
     Route: 048
  3. NEXIUM [Suspect]
     Indication: GASTROOESOPHAGEAL REFLUX DISEASE
     Route: 048

REACTIONS (7)
  - VERTIGO [None]
  - FLATULENCE [None]
  - DIARRHOEA [None]
  - CONSTIPATION [None]
  - SOMNOLENCE [None]
  - ANAPHYLACTIC REACTION [None]
  - HAEMORRHAGE INTRACRANIAL [None]
